FAERS Safety Report 23221311 (Version 3)
Quarter: 2023Q4

REPORT INFORMATION
  Report Type: Report from Study
  Country: CA (occurrence: CA)
  Receive Date: 20231123
  Receipt Date: 20231207
  Transmission Date: 20240110
  Serious: Yes (Hospitalization, Other)
  Sender: FDA-Public Use
  Company Number: CA-Korea IPSEN-2023-26155

PATIENT
  Age: 78 Year
  Sex: Male

DRUGS (3)
  1. LANREOTIDE ACETATE [Suspect]
     Active Substance: LANREOTIDE ACETATE
     Indication: Gastroenteropancreatic neuroendocrine tumour disease
     Route: 058
     Dates: start: 20200227
  2. FRAGMIN [Concomitant]
     Active Substance: DALTEPARIN SODIUM
  3. GLECAPREVIR\PIBRENTASVIR [Concomitant]
     Active Substance: GLECAPREVIR\PIBRENTASVIR

REACTIONS (3)
  - Cardiac failure [Unknown]
  - Malaise [Unknown]
  - Arrhythmia [Unknown]

NARRATIVE: CASE EVENT DATE: 20231101
